FAERS Safety Report 4863567-5 (Version None)
Quarter: 2005Q4

REPORT INFORMATION
  Report Type: 
  Country: None (occurrence: None)
  Receive Date: 20051222
  Receipt Date: 20050428
  Transmission Date: 20060501
  Serious: No
  Sender: FDA-Public Use
  Company Number: US-GLAXOSMITHKLINE-A0556183A

PATIENT
  Sex: Female

DRUGS (15)
  1. FLONASE [Suspect]
     Dosage: 200MG PER DAY
     Route: 045
  2. KEPPRA [Concomitant]
  3. TRANXENE [Concomitant]
  4. MICRO-K [Concomitant]
  5. HYDROCONE [Concomitant]
  6. PREVACID [Concomitant]
  7. GLUCOPHAGE [Concomitant]
  8. METHYLPHENIDATE HCL [Concomitant]
  9. INSULIN [Concomitant]
  10. FOSAMAX [Concomitant]
  11. LASIX [Concomitant]
  12. CLARINEX [Concomitant]
  13. TYLENOL [Concomitant]
  14. VITAMIN [Concomitant]
  15. COREG [Concomitant]

REACTIONS (2)
  - COUGH [None]
  - PHARYNGOLARYNGEAL PAIN [None]
